FAERS Safety Report 17235546 (Version 1)
Quarter: 2020Q1

REPORT INFORMATION
  Report Type: Spontaneous
  Country: FR (occurrence: FR)
  Receive Date: 20200106
  Receipt Date: 20200106
  Transmission Date: 20200409
  Serious: Yes (Hospitalization)
  Sender: FDA-Public Use
  Company Number: FR-EMD SERONO-E2B_90073754

PATIENT
  Age: 29 Year
  Sex: Female
  Weight: 90 kg

DRUGS (3)
  1. OVITRELLE [Suspect]
     Active Substance: CHORIOGONADOTROPIN ALFA
     Indication: IN VITRO FERTILISATION
     Route: 058
     Dates: start: 20191030
  2. GONAL-F [Suspect]
     Active Substance: FOLLITROPIN
     Indication: IN VITRO FERTILISATION
     Route: 058
     Dates: start: 201910, end: 201910
  3. DECAPEPTYL (ACETATE) [Suspect]
     Active Substance: TRIPTORELIN ACETATE
     Indication: IN VITRO FERTILISATION
     Route: 058
     Dates: start: 20191030

REACTIONS (3)
  - Ascites [Recovered/Resolved]
  - Hyponatraemia [Recovering/Resolving]
  - Ovarian hyperstimulation syndrome [Recovered/Resolved]

NARRATIVE: CASE EVENT DATE: 20191119
